FAERS Safety Report 16607905 (Version 1)
Quarter: 2019Q3

REPORT INFORMATION
  Report Type: Spontaneous
  Country: US (occurrence: US)
  Receive Date: 20190606
  Receipt Date: 20190606
  Transmission Date: 20191004
  Serious: Yes (Other)
  Sender: FDA-Public Use
  Company Number: None

PATIENT
  Sex: Female

DRUGS (11)
  1. ALECENSA [Suspect]
     Active Substance: ALECTINIB HYDROCHLORIDE
     Indication: LUNG NEOPLASM MALIGNANT
     Route: 048
     Dates: start: 20181103
  2. ASPIRIN TAB [Concomitant]
  3. DOXYCYCL HYC TAB [Concomitant]
  4. ATENOLOL TAB [Concomitant]
     Active Substance: ATENOLOL
  5. CALCIUM CARB TAB [Concomitant]
  6. HYDROCHLOROT CAP [Concomitant]
  7. POTASSIUM TAB [Concomitant]
  8. CHOLECALCIF POW [Concomitant]
  9. FUROSEMIDE TAB [Concomitant]
  10. HYDROCHLOROT TAB [Concomitant]
  11. OMEGA - 3 CAP [Concomitant]

REACTIONS (1)
  - Myocardial infarction [None]
